FAERS Safety Report 23463190 (Version 1)
Quarter: 2024Q1

REPORT INFORMATION
  Report Type: Spontaneous
  Country: US (occurrence: US)
  Receive Date: 20240131
  Receipt Date: 20240131
  Transmission Date: 20240409
  Serious: Yes (Other)
  Sender: FDA-Public Use
  Company Number: US-PFIZER INC-202400028830

PATIENT
  Age: 85 Year
  Sex: Female

DRUGS (2)
  1. XELJANZ [Suspect]
     Active Substance: TOFACITINIB CITRATE
     Dosage: 5 MG, TWICE A DAY
     Route: 048
  2. XELJANZ XR [Suspect]
     Active Substance: TOFACITINIB CITRATE
     Dosage: 11 MG, DAILY
     Route: 048

REACTIONS (8)
  - Atrial fibrillation [Unknown]
  - Hypertension [Unknown]
  - Obstructive sleep apnoea syndrome [Unknown]
  - Osteoarthritis [Unknown]
  - Dyspnoea [Unknown]
  - Herpes zoster [Unknown]
  - Arthralgia [Unknown]
  - Condition aggravated [Unknown]
